FAERS Safety Report 8045853-3 (Version None)
Quarter: 2012Q1

REPORT INFORMATION
  Report Type: 
  Country: None (occurrence: None)
  Receive Date: 20120113
  Receipt Date: 20120110
  Transmission Date: 20120608
  Serious: Yes (Death, Hospitalization, Other)
  Sender: FDA-Public Use
  Company Number: US-CELGENEUS-163-21880-12011014

PATIENT
  Sex: Male

DRUGS (14)
  1. REVLIMID [Suspect]
     Indication: PLASMACYTOMA
     Dosage: 15 MILLIGRAM
     Route: 048
     Dates: start: 20110401
  2. DEXAMETHASONE TAB [Concomitant]
     Route: 065
  3. PROGRAF [Concomitant]
     Route: 065
  4. REVLIMID [Suspect]
     Dosage: 10 MILLIGRAM
     Route: 048
     Dates: start: 20110501
  5. ASPIRIN [Concomitant]
     Route: 065
  6. GLIPIZIDE [Concomitant]
     Route: 065
  7. ACTOS [Concomitant]
     Route: 065
  8. LIPITOR [Concomitant]
     Route: 065
  9. METOPROLOL TARTRATE [Concomitant]
     Route: 065
  10. ALLOPURINOL [Concomitant]
     Route: 065
  11. NEOPHRO-VITE [Concomitant]
     Route: 065
  12. FAMOTIDINE [Concomitant]
     Route: 065
  13. PREDNISONE [Concomitant]
     Route: 065
  14. FOLIC ACID [Concomitant]
     Route: 065

REACTIONS (4)
  - CARDIOMYOPATHY [None]
  - PLASMACYTOMA [None]
  - ANAEMIA [None]
  - RENAL FAILURE [None]
